FAERS Safety Report 9799850 (Version 2)
Quarter: 2014Q1

REPORT INFORMATION
  Report Type: Spontaneous
  Country: US (occurrence: US)
  Receive Date: 20140106
  Receipt Date: 20140130
  Transmission Date: 20141002
  Serious: Yes (Other)
  Sender: FDA-Public Use
  Company Number: US-GLAXOSMITHKLINE-A1055186A

PATIENT
  Age: 85 Year
  Sex: Female

DRUGS (7)
  1. ADVAIR HFA [Suspect]
     Indication: CHRONIC OBSTRUCTIVE PULMONARY DISEASE
     Dosage: 1PUFF TWICE PER DAY
     Route: 055
     Dates: start: 2008
  2. NEBULIZER [Concomitant]
  3. OXYGEN [Concomitant]
  4. PROAIR HFA [Concomitant]
  5. UNSPECIFIED TREATMENT [Concomitant]
  6. ASPIRIN [Concomitant]
  7. BLOOD PRESSURE MEDICATION [Concomitant]

REACTIONS (5)
  - Macular degeneration [Not Recovered/Not Resolved]
  - Cataract operation [Unknown]
  - Blindness unilateral [Not Recovered/Not Resolved]
  - Visual acuity reduced [Not Recovered/Not Resolved]
  - Diplopia [Not Recovered/Not Resolved]
